FAERS Safety Report 15893081 (Version 1)
Quarter: 2019Q1

REPORT INFORMATION
  Report Type: Report from Study
  Country: US (occurrence: US)
  Receive Date: 20190130
  Receipt Date: 20190130
  Transmission Date: 20190417
  Serious: No
  Sender: FDA-Public Use
  Company Number: US-EXELIXIS-CABO-18016735

PATIENT
  Sex: Male

DRUGS (20)
  1. LASIX [Concomitant]
     Active Substance: FUROSEMIDE
  2. LOSARTAN. [Concomitant]
     Active Substance: LOSARTAN
  3. ELIQUIS [Concomitant]
     Active Substance: APIXABAN
  4. LEVEMIR [Concomitant]
     Active Substance: INSULIN DETEMIR
  5. TOPROL XL [Concomitant]
     Active Substance: METOPROLOL SUCCINATE
  6. CABOMETYX [Suspect]
     Active Substance: CABOZANTINIB S-MALATE
     Dosage: 40 MG, QD
     Route: 048
     Dates: start: 2018, end: 2018
  7. CABOMETYX [Suspect]
     Active Substance: CABOZANTINIB S-MALATE
     Dosage: 40 MG, QD (02 X 20 MG)
     Route: 048
     Dates: start: 2018
  8. AMARYL [Concomitant]
     Active Substance: GLIMEPIRIDE
  9. NOVOLOG [Concomitant]
     Active Substance: INSULIN ASPART
  10. IMODIUM A-D [Concomitant]
     Active Substance: LOPERAMIDE HYDROCHLORIDE
  11. CABOMETYX [Suspect]
     Active Substance: CABOZANTINIB S-MALATE
     Indication: RENAL CANCER
     Dosage: 20 MG, QD
     Route: 048
     Dates: start: 20181003, end: 2018
  12. IMODIUM [Concomitant]
     Active Substance: LOPERAMIDE HYDROCHLORIDE
  13. CABOMETYX [Suspect]
     Active Substance: CABOZANTINIB S-MALATE
     Dosage: 60 MG, QD (3X20 MG)
     Route: 048
     Dates: start: 2018, end: 2018
  14. ACETAMINOPHEN. [Concomitant]
     Active Substance: ACETAMINOPHEN
  15. ASPIRIN. [Concomitant]
     Active Substance: ASPIRIN
  16. ERGOCALCIFEROL. [Concomitant]
     Active Substance: ERGOCALCIFEROL
  17. APRESOLINE HYDROCHLORIDE [Concomitant]
     Active Substance: HYDRALAZINE HYDROCHLORIDE
  18. ISORDIL [Concomitant]
     Active Substance: ISOSORBIDE DINITRATE
  19. OXYCODONE [Concomitant]
     Active Substance: OXYCODONE
  20. PROTONIX [Concomitant]
     Active Substance: PANTOPRAZOLE SODIUM

REACTIONS (4)
  - Thermal burn [Unknown]
  - Cyst [Unknown]
  - Rash [Recovering/Resolving]
  - Erythema [Unknown]

NARRATIVE: CASE EVENT DATE: 2018
